FAERS Safety Report 25539131 (Version 1)
Quarter: 2025Q3

REPORT INFORMATION
  Report Type: Spontaneous
  Country: US (occurrence: None)
  Receive Date: 20250709
  Receipt Date: 20250709
  Transmission Date: 20251020
  Serious: Yes (Hospitalization, Other)
  Sender: FDA-CTU
  Company Number: None

PATIENT
  Age: 20 Year
  Sex: Male
  Weight: 2.07 kg

DRUGS (2)
  1. RISPERIDONE [Suspect]
     Active Substance: RISPERIDONE
     Indication: Bipolar disorder
     Dates: start: 20220324
  2. maternal medication: levothyroxine [Concomitant]
     Dates: start: 20220630, end: 20220714

REACTIONS (3)
  - Maternal drugs affecting foetus [None]
  - Premature baby [None]
  - Neonatal dyspnoea [None]

NARRATIVE: CASE EVENT DATE: 20221027
